FAERS Safety Report 16454130 (Version 1)
Quarter: 2019Q2

REPORT INFORMATION
  Report Type: Spontaneous
  Country: US (occurrence: US)
  Receive Date: 20190619
  Receipt Date: 20190619
  Transmission Date: 20190711
  Serious: Yes (Hospitalization)
  Sender: FDA-Public Use
  Company Number: US-ROCHE-2193234

PATIENT
  Age: 55 Year
  Sex: Female
  Weight: 87.62 kg

DRUGS (13)
  1. XANAX [Concomitant]
     Active Substance: ALPRAZOLAM
  2. ACTEMRA [Suspect]
     Active Substance: TOCILIZUMAB
     Indication: RHEUMATOID ARTHRITIS
     Dosage: 162MG/0.9ML PFS
     Route: 058
     Dates: start: 201711
  3. CELEBREX [Concomitant]
     Active Substance: CELECOXIB
  4. CYMBALTA [Concomitant]
     Active Substance: DULOXETINE HYDROCHLORIDE
  5. OTREXUP [Concomitant]
     Active Substance: METHOTREXATE
  6. FENOFIBRATE. [Concomitant]
     Active Substance: FENOFIBRATE
     Route: 065
  7. XIIDRA [Concomitant]
     Active Substance: LIFITEGRAST
     Route: 065
  8. LYRICA [Concomitant]
     Active Substance: PREGABALIN
  9. WARFARIN [Concomitant]
     Active Substance: WARFARIN
  10. FOLIC ACID. [Concomitant]
     Active Substance: FOLIC ACID
  11. METOPROLOL. [Concomitant]
     Active Substance: METOPROLOL
  12. PEPCID (UNITED STATES) [Concomitant]
  13. LIPITOR [Concomitant]
     Active Substance: ATORVASTATIN CALCIUM

REACTIONS (1)
  - Pneumonia [Unknown]

NARRATIVE: CASE EVENT DATE: 20180928
